FAERS Safety Report 9897192 (Version 1)
Quarter: 2014Q1

REPORT INFORMATION
  Report Type: Spontaneous
  Country: BR (occurrence: BR)
  Receive Date: 20140214
  Receipt Date: 20140214
  Transmission Date: 20141002
  Serious: Yes (Death, Hospitalization, Other)
  Sender: FDA-Public Use
  Company Number: BR-AMGEN-BRASP2014010701

PATIENT
  Age: 91 Year
  Sex: Female
  Weight: 47 kg

DRUGS (7)
  1. ENBREL [Suspect]
     Indication: PSORIATIC ARTHROPATHY
     Dosage: 50 MG, ONCE WEEKLY
     Route: 058
     Dates: start: 201209
  2. LEVOID [Concomitant]
     Dosage: UNK
  3. CALCIUM [Concomitant]
     Dosage: UNK
  4. SUSTRATE [Concomitant]
     Indication: CARDIAC DISORDER
     Dosage: 100 MG, UNK
  5. IBUPROFEN [Concomitant]
     Indication: PAIN
     Dosage: UNK
  6. ALENDRONATE SODIUM [Concomitant]
     Indication: OSTEOARTHRITIS
     Dosage: 600 MG, UNK
  7. AAS [Concomitant]
     Indication: ANTICOAGULANT THERAPY
     Dosage: 100 MG, UNK

REACTIONS (3)
  - Multi-organ failure [Fatal]
  - Apathy [Unknown]
  - Dehydration [Unknown]
